FAERS Safety Report 17339731 (Version 1)
Quarter: 2020Q1

REPORT INFORMATION
  Report Type: Report from Study
  Country: None (occurrence: US)
  Receive Date: 20200129
  Receipt Date: 20200129
  Transmission Date: 20200409
  Serious: Yes (Hospitalization)
  Sender: FDA-Public Use
  Company Number: US-ABBVIE-20K-163-3239061-00

PATIENT
  Age: 58 Year
  Sex: Male

DRUGS (4)
  1. SKYRIZI [Suspect]
     Active Substance: RISANKIZUMAB-RZAA
     Indication: PSORIASIS
     Route: 058
     Dates: start: 20191219
  2. PAXIL [Concomitant]
     Active Substance: PAROXETINE HYDROCHLORIDE
     Indication: PRODUCT USED FOR UNKNOWN INDICATION
  3. WARFARIN [Concomitant]
     Active Substance: WARFARIN
     Indication: PRODUCT USED FOR UNKNOWN INDICATION
  4. BENAZEPRIL [Concomitant]
     Active Substance: BENAZEPRIL HYDROCHLORIDE
     Indication: PRODUCT USED FOR UNKNOWN INDICATION

REACTIONS (10)
  - Bacterial sepsis [Recovering/Resolving]
  - Coronary artery occlusion [Not Recovered/Not Resolved]
  - Aortic valve disease [Not Recovered/Not Resolved]
  - Influenza [Recovered/Resolved]
  - Dysarthria [Recovered/Resolved]
  - Hemiparesis [Recovering/Resolving]
  - Cerebrovascular accident [Recovering/Resolving]
  - Facial paralysis [Recovered/Resolved]
  - Cardiac valve vegetation [Not Recovered/Not Resolved]
  - Pain [Recovered/Resolved]

NARRATIVE: CASE EVENT DATE: 20191228
